FAERS Safety Report 7922583-7 (Version None)
Quarter: 2011Q4

REPORT INFORMATION
  Report Type: 
  Country: None (occurrence: None)
  Receive Date: 20111117
  Receipt Date: 20101014
  Transmission Date: 20120403
  Serious: No
  Sender: FDA-Public Use
  Company Number: US-ALLERGAN-1013114US

PATIENT
  Age: 80 Year
  Sex: Male

DRUGS (1)
  1. COMBIGAN [Suspect]
     Indication: GLAUCOMA
     Dosage: 1 GTT, BID
     Route: 047
     Dates: start: 20101011, end: 20101012

REACTIONS (5)
  - LIP SWELLING [None]
  - DIZZINESS [None]
  - CONFUSIONAL STATE [None]
  - SWOLLEN TONGUE [None]
  - DYSGEUSIA [None]
